FAERS Safety Report 6671007-9 (Version None)
Quarter: 2010Q2

REPORT INFORMATION
  Report Type: 
  Country: None (occurrence: None)
  Receive Date: 20100407
  Receipt Date: 20100326
  Transmission Date: 20101027
  Serious: Yes (Other)
  Sender: FDA-Public Use
  Company Number: PHHY2009JP29089

PATIENT
  Sex: Male

DRUGS (6)
  1. TASIGNA [Suspect]
     Indication: CHRONIC MYELOID LEUKAEMIA
     Dosage: 800 MG/DAY
     Route: 048
     Dates: start: 20090522
  2. TASIGNA [Suspect]
     Dosage: 400 MG DAILY
     Dates: start: 20090727
  3. TASIGNA [Suspect]
     Dosage: 200 MG DAILY
     Dates: start: 20091102
  4. UNIPHYL LA [Concomitant]
     Dosage: 400 MG, UNK
     Route: 048
     Dates: start: 20070614
  5. PREDNISOLONE [Concomitant]
     Dosage: 4 MG, UNK
     Route: 048
     Dates: start: 20070719
  6. DIART [Concomitant]
     Dosage: 30 MG, UNK
     Route: 048
     Dates: start: 20071006

REACTIONS (2)
  - CONDITION AGGRAVATED [None]
  - STOMATITIS [None]
